FAERS Safety Report 10083462 (Version 1)
Quarter: 2014Q2

REPORT INFORMATION
  Report Type: Spontaneous
  Country: US (occurrence: None)
  Receive Date: 20140416
  Receipt Date: 20140416
  Transmission Date: 20141212
  Serious: No
  Sender: FDA-Public Use
  Company Number: None

PATIENT
  Age: 69 Year
  Sex: Male
  Weight: 86.4 kg

DRUGS (1)
  1. WARFARIN [Suspect]
     Dates: start: 20130219, end: 20131001

REACTIONS (1)
  - Haemorrhage [None]
